FAERS Safety Report 8875796 (Version 3)
Quarter: 2013Q2

REPORT INFORMATION
  Report Type: Spontaneous
  Country: US (occurrence: US)
  Receive Date: 20121023
  Receipt Date: 20130621
  Transmission Date: 20140414
  Serious: No
  Sender: FDA-Public Use
  Company Number: US-009507513-1210USA009585

PATIENT
  Age: 29 Year
  Sex: Female
  Weight: 65.76 kg

DRUGS (3)
  1. IMPLANON [Suspect]
     Dosage: 1 DF, EVERY 3 YEARS
     Route: 059
     Dates: start: 20121015, end: 20121015
  2. IMPLANON [Suspect]
     Dosage: 1 UNK, EVERY 3 YEARS
     Route: 059
     Dates: start: 20121015
  3. IMPLANON [Suspect]
     Dosage: 1 UNK, UNK
     Route: 059

REACTIONS (3)
  - Device difficult to use [Recovered/Resolved]
  - Product quality issue [Unknown]
  - No adverse event [Unknown]
